FAERS Safety Report 4283853-X (Version None)
Quarter: 2004Q1

REPORT INFORMATION
  Report Type: 
  Country: None (occurrence: None)
  Receive Date: 20040130
  Receipt Date: 20040119
  Transmission Date: 20041129
  Serious: Yes (Other)
  Sender: FDA-Public Use
  Company Number: NSADSS2003023849

PATIENT
  Age: 55 Year
  Sex: Female
  Weight: 65.7716 kg

DRUGS (3)
  1. REMICADE [Suspect]
     Indication: RHEUMATOID ARTHRITIS
     Dosage: 1 IN 1 AS NECESSARY, INTRAVENOUS DRIP
     Route: 041
     Dates: start: 20021016, end: 20021016
  2. CENTROID ( ) CENTRUM [Concomitant]
  3. FLASMEX ( ) ALL OTHER THERAPEUTIC PRODUCTS [Concomitant]

REACTIONS (5)
  - ERYTHEMA NODOSUM [None]
  - IMMUNE SYSTEM DISORDER [None]
  - SARCOIDOSIS [None]
  - SCLERITIS [None]
  - SYSTEMIC LUPUS ERYTHEMATOSUS [None]
